FAERS Safety Report 25606853 (Version 1)
Quarter: 2025Q3

REPORT INFORMATION
  Report Type: Spontaneous
  Country: US (occurrence: US)
  Receive Date: 20250725
  Receipt Date: 20250725
  Transmission Date: 20251020
  Serious: No
  Sender: BRISTOL-MYERS SQUIBB COMPANY
  Company Number: US-BRISTOL-MYERS SQUIBB COMPANY-2025-104362

PATIENT
  Age: 60 Year
  Sex: Male

DRUGS (2)
  1. POMALYST [Suspect]
     Active Substance: POMALIDOMIDE
     Indication: Plasma cell myeloma
     Route: 048
     Dates: start: 202404
  2. POMALYST [Suspect]
     Active Substance: POMALIDOMIDE
     Dosage: EVERY OTHER DAY DOSING
     Route: 048

REACTIONS (2)
  - Headache [Unknown]
  - Dizziness [Unknown]
